FAERS Safety Report 24298968 (Version 2)
Quarter: 2024Q4

REPORT INFORMATION
  Report Type: Report from Study
  Country: US (occurrence: US)
  Receive Date: 20240909
  Receipt Date: 20241125
  Transmission Date: 20250115
  Serious: No
  Sender: TAKEDA
  Company Number: US-TAKEDA-2024TUS089671

PATIENT
  Age: 79 Year
  Sex: Male

DRUGS (11)
  1. TEDUGLUTIDE [Suspect]
     Active Substance: TEDUGLUTIDE
     Indication: Short-bowel syndrome
     Dosage: 4.20 MILLIGRAM, QD
     Dates: start: 20180921, end: 201810
  2. TEDUGLUTIDE [Suspect]
     Active Substance: TEDUGLUTIDE
     Dosage: 4.2 MILLIGRAM, 2/WEEK
     Dates: start: 20181209, end: 201902
  3. TEDUGLUTIDE [Suspect]
     Active Substance: TEDUGLUTIDE
     Dosage: 2.1 MILLIGRAM, 2/WEEK
     Dates: start: 201903, end: 20190320
  4. TEDUGLUTIDE [Suspect]
     Active Substance: TEDUGLUTIDE
  5. AMLODIPINE [Concomitant]
     Active Substance: AMLODIPINE BESYLATE
     Indication: Hypertension
     Dosage: 10 MILLIGRAM, QD
  6. ERGOCALCIFEROL [Concomitant]
     Active Substance: ERGOCALCIFEROL
     Indication: Vitamin D decreased
     Dosage: 1250 MICROGRAM, 2/WEEK
  7. ATROPINE SULFATE\DIPHENOXYLATE HYDROCHLORIDE [Concomitant]
     Active Substance: ATROPINE SULFATE\DIPHENOXYLATE HYDROCHLORIDE
     Indication: Diarrhoea
     Dosage: 2.5 MILLIGRAM, QID
  8. ATROPINE SULFATE\DIPHENOXYLATE HYDROCHLORIDE [Concomitant]
     Active Substance: ATROPINE SULFATE\DIPHENOXYLATE HYDROCHLORIDE
     Dosage: 0.025 MILLIGRAM, QID
  9. FUROSEMIDE [Concomitant]
     Active Substance: FUROSEMIDE
     Indication: Hypertension
     Dosage: 40 MILLIGRAM, BID
  10. ZINC [Concomitant]
     Active Substance: ZINC
     Indication: Blood zinc decreased
     Dosage: 220 MILLIGRAM, QD
  11. GABAPENTIN [Concomitant]
     Active Substance: GABAPENTIN
     Indication: Pain
     Dosage: 300 MILLIGRAM, TID

REACTIONS (3)
  - Bronchitis [Recovered/Resolved]
  - Seborrhoeic keratosis [Recovered/Resolved]
  - Pharyngitis [Recovered/Resolved]

NARRATIVE: CASE EVENT DATE: 20240410
